FAERS Safety Report 11967519 (Version 4)
Quarter: 2016Q1

REPORT INFORMATION
  Report Type: Report from Study
  Country: JP (occurrence: JP)
  Receive Date: 20160127
  Receipt Date: 20160324
  Transmission Date: 20160526
  Serious: Yes (Hospitalization, Other)
  Sender: FDA-Public Use
  Company Number: JP-009507513-1601JPN007568

PATIENT
  Age: 42 Year
  Sex: Female
  Weight: 50 kg

DRUGS (12)
  1. FAMOTIDINE. [Concomitant]
     Active Substance: FAMOTIDINE
     Indication: PROPHYLAXIS
     Dosage: DAILY DOSAGE UNKNOWN
     Route: 048
  2. AVASTIN [Concomitant]
     Active Substance: BEVACIZUMAB
     Dosage: DAILY DOSAGE UNKNOWN
     Route: 041
     Dates: start: 20150105, end: 20150105
  3. NASEA [Concomitant]
     Active Substance: RAMOSETRON HYDROCHLORIDE
     Indication: PROPHYLAXIS
     Dosage: DAILY DOSAGE UNKNOWN
     Route: 048
     Dates: start: 20141222, end: 20141226
  4. KEPPRA [Concomitant]
     Active Substance: LEVETIRACETAM
     Dosage: DAILY DOSAGE UNKNOWN, FORMULATION: POR
     Route: 048
  5. TEMODAL [Suspect]
     Active Substance: TEMOZOLOMIDE
     Indication: GLIOBLASTOMA MULTIFORME
     Dosage: DAILY DOSAGE UNKNOWN
     Route: 048
     Dates: start: 20131016, end: 20141118
  6. NIDRAN [Suspect]
     Active Substance: NIMUSTINE
     Dosage: DAILY DOSAGE UNKNOWN
     Route: 041
     Dates: start: 20150106, end: 20150303
  7. RINDERON V [Concomitant]
     Active Substance: BETAMETHASONE VALERATE
     Dosage: DAILY DOSAGE UNKNOWN, FORMULATION: POR
     Route: 048
     Dates: end: 20150115
  8. GLIADEL [Concomitant]
     Active Substance: CARMUSTINE
     Dosage: DAILY DOSAGE UNKNOWN, FORMULATION: EXT
     Route: 065
     Dates: start: 20141208
  9. TEMOZOLOMIDE. [Suspect]
     Active Substance: TEMOZOLOMIDE
     Indication: GLIOBLASTOMA MULTIFORME
     Dosage: 150 MG/M2, QD
     Route: 041
     Dates: start: 20141222, end: 20141226
  10. REBAMIPIDE [Concomitant]
     Active Substance: REBAMIPIDE
     Dosage: DAILY DOSE UNKNOWN, FORMULATION: POR
     Route: 048
  11. TEGRETOL [Concomitant]
     Active Substance: CARBAMAZEPINE
     Dosage: DAILY DOSAGE UNKNOWN, FORMULATION:  POR
     Route: 048
  12. TAKEPRON [Concomitant]
     Active Substance: LANSOPRAZOLE
     Indication: PROPHYLAXIS
     Dosage: DAILY DOSAGE UNKNOWN
     Route: 048

REACTIONS (8)
  - Alanine aminotransferase increased [Recovered/Resolved]
  - Pneumonia aspiration [Recovered/Resolved]
  - Lymphocyte count decreased [Not Recovered/Not Resolved]
  - White blood cell count decreased [Recovered/Resolved]
  - Wound complication [Recovered/Resolved]
  - Aspartate aminotransferase increased [Recovered/Resolved]
  - Venous thrombosis limb [Recovered/Resolved]
  - C-reactive protein increased [Recovered/Resolved]

NARRATIVE: CASE EVENT DATE: 20150105
